FAERS Safety Report 7057710-X (Version None)
Quarter: 2010Q4

REPORT INFORMATION
  Report Type: 
  Country: None (occurrence: None)
  Receive Date: 20101022
  Receipt Date: 20101012
  Transmission Date: 20110411
  Serious: Yes (Other)
  Sender: FDA-Public Use
  Company Number: US-ROCHE-733696

PATIENT
  Sex: Female

DRUGS (1)
  1. ACCUTANE [Suspect]
     Indication: PRODUCT USED FOR UNKNOWN INDICATION
     Route: 065
     Dates: start: 20011101, end: 20020401

REACTIONS (3)
  - COLITIS ULCERATIVE [None]
  - DIVERTICULUM [None]
  - INFLAMMATORY BOWEL DISEASE [None]
